FAERS Safety Report 4305963-0 (Version None)
Quarter: 2004Q1

REPORT INFORMATION
  Report Type: 
  Country: None (occurrence: None)
  Receive Date: 20040225
  Receipt Date: 20040213
  Transmission Date: 20041129
  Serious: Yes (Death, Hospitalization)
  Sender: FDA-Public Use
  Company Number: 04P-144-0248179-00

PATIENT
  Age: 39 Year
  Sex: Male

DRUGS (6)
  1. KALETRA [Suspect]
     Indication: HIV INFECTION
     Dosage: 3 CAPSULE, 2 IN 1 D, PER ORAL
     Route: 048
     Dates: start: 20021219
  2. ESTAVUDINA (STAVUDINE) [Concomitant]
  3. DIDANOSINA (DIDANOSINE) [Concomitant]
  4. BACTRIM [Concomitant]
  5. CALCIUM FOLINATE [Concomitant]
  6. METHADONE HCL [Concomitant]

REACTIONS (5)
  - COMA HEPATIC [None]
  - DIARRHOEA [None]
  - HEPATIC FAILURE [None]
  - PERITONITIS BACTERIAL [None]
  - UPPER GASTROINTESTINAL HAEMORRHAGE [None]
